FAERS Safety Report 24737225 (Version 1)
Quarter: 2024Q4

REPORT INFORMATION
  Report Type: Spontaneous
  Country: US (occurrence: None)
  Receive Date: 20241213
  Receipt Date: 20241213
  Transmission Date: 20250115
  Serious: No
  Sender: Public
  Company Number: None

PATIENT
  Age: 62 Year
  Sex: Male
  Weight: 118 kg

DRUGS (1)
  1. DROXIDOPA [Suspect]
     Active Substance: DROXIDOPA

REACTIONS (5)
  - Anaphylactic reaction [None]
  - Angioedema [None]
  - Throat tightness [None]
  - Skin discolouration [None]
  - Therapy cessation [None]

NARRATIVE: CASE EVENT DATE: 20240803
